FAERS Safety Report 7632638 (Version 2)
Quarter: 2012Q4

REPORT INFORMATION
  Report Type: 
  Country: SI (occurrence: SI)
  Receive Date: 20101018
  Receipt Date: 20121018
  Transmission Date: 20130627
  Serious: Yes (Death, Other)
  Sender: FDA-Public Use
  Company Number: SI-CELGENEUS-261-21880-10101138

PATIENT
  Age: 50 Year
  Sex: Male
  Weight: 80 kg

DRUGS (5)
  1. REVLIMID [Suspect]
     Indication: MULTIPLE MYELOMA
     Route: 048
     Dates: start: 20100628, end: 20100711
  2. LYRICA [Concomitant]
     Indication: PERIPHERAL NEUROPATHY NOS
     Route: 065
     Dates: start: 201006, end: 20100723
  3. BYOL [Concomitant]
     Indication: HYPERTENSION ARTERIAL
     Dosage: 5 Milligram
     Route: 065
     Dates: end: 20100723
  4. ALLOPURINOL [Concomitant]
     Indication: HYPERURICAEMIA
     Route: 048
     Dates: start: 200806, end: 20100723
  5. SEVREDOL [Concomitant]
     Indication: ANALGESIA
     Route: 048
     Dates: start: 201006, end: 20100723

REACTIONS (2)
  - Escherichia sepsis [Fatal]
  - Cholecystitis acute [Unknown]
